FAERS Safety Report 9062634 (Version 1)
Quarter: 2013Q1

REPORT INFORMATION
  Report Type: Report from Study
  Country: NL (occurrence: NL)
  Receive Date: 20130213
  Receipt Date: 20130213
  Transmission Date: 20140127
  Serious: Yes (Disabling)
  Sender: FDA-Public Use
  Company Number: NL-ROCHE-719288

PATIENT
  Age: 45 None
  Sex: Male
  Weight: 65 kg

DRUGS (8)
  1. RITUXIMAB [Suspect]
     Indication: MALIGNANT LYMPHOID NEOPLASM
     Dosage: DOSE DELAYED,
     Route: 042
     Dates: start: 20100721
  2. PEGFILGRASTIM [Suspect]
     Indication: MALIGNANT LYMPHOID NEOPLASM
     Dosage: DOSE DELAYED
     Route: 058
     Dates: start: 20100722
  3. CYCLOPHOSPHAMIDE [Suspect]
     Indication: MALIGNANT LYMPHOID NEOPLASM
     Dosage: DOSE DELAYED
     Route: 042
     Dates: start: 20100721
  4. DOXORUBICIN [Suspect]
     Indication: MALIGNANT LYMPHOID NEOPLASM
     Dosage: DOSE DELAYED
     Route: 042
     Dates: start: 20100721
  5. VINCRISTINE [Suspect]
     Indication: MALIGNANT LYMPHOID NEOPLASM
     Dosage: DOSE DELAYED
     Route: 042
     Dates: start: 20100721
  6. PREDNISONE [Suspect]
     Indication: MALIGNANT LYMPHOID NEOPLASM
     Dosage: DATE OF LAST DOSE PRIOR TO EVENT: 26/JUL/2010; DOSE DELAYED
     Route: 048
     Dates: start: 20100721
  7. CO-TRIMOXAZOLE [Concomitant]
     Indication: PROPHYLAXIS
     Dosage: DATE OF LAST DOSE PRIOR TO SAE: /AUG/2010
     Route: 048
     Dates: start: 20100721
  8. ZELITREX [Concomitant]
     Indication: PROPHYLAXIS
     Dosage: DATE OF LAST DOSE PRIOR TO EVENT: /AUG/2010
     Route: 048
     Dates: start: 20100721

REACTIONS (1)
  - Soft tissue disorder [Recovered/Resolved]
